FAERS Safety Report 16759184 (Version 1)
Quarter: 2019Q3

REPORT INFORMATION
  Report Type: Report from Study
  Country: DE (occurrence: DE)
  Receive Date: 20190830
  Receipt Date: 20190830
  Transmission Date: 20191005
  Serious: Yes (Other)
  Sender: FDA-Public Use
  Company Number: DE-ROCHE-2396958

PATIENT
  Sex: Male
  Weight: 2.45 kg

DRUGS (2)
  1. DIAZEPAM. [Suspect]
     Active Substance: DIAZEPAM
     Indication: CATHETER SITE DISCHARGE
     Route: 042
  2. PHENOBARBITAL. [Suspect]
     Active Substance: PHENOBARBITAL
     Indication: CATHETER SITE DISCHARGE
     Route: 042

REACTIONS (4)
  - Somnolence [Unknown]
  - Respiratory depression [Unknown]
  - Hypotonia [Unknown]
  - Hyperbilirubinaemia [Unknown]
